FAERS Safety Report 15720522 (Version 2)
Quarter: 2018Q4

REPORT INFORMATION
  Report Type: Report from Study
  Country: RO (occurrence: RO)
  Receive Date: 20181213
  Receipt Date: 20181224
  Transmission Date: 20190205
  Serious: Yes (Hospitalization, Other)
  Sender: FDA-Public Use
  Company Number: RO-GILEAD-2018-0379821

PATIENT
  Age: 61 Year
  Sex: Male

DRUGS (3)
  1. NEUPRO [Concomitant]
     Active Substance: ROTIGOTINE
  2. LEDIPASVIR/SOFOSBUVIR [Suspect]
     Active Substance: LEDIPASVIR\SOFOSBUVIR
     Indication: HEPATITIS C
     Dosage: 1 DF, QD
     Route: 048
     Dates: start: 20180622, end: 20180913
  3. LEDIPASVIR/SOFOSBUVIR [Suspect]
     Active Substance: LEDIPASVIR\SOFOSBUVIR
     Indication: HEPATIC CIRRHOSIS

REACTIONS (9)
  - Hemiplegia [Recovering/Resolving]
  - Pulmonary fibrosis [Recovering/Resolving]
  - Thrombocytopenia [Recovering/Resolving]
  - Transient ischaemic attack [Unknown]
  - Cerebellar atrophy [Recovering/Resolving]
  - Muscular weakness [Recovering/Resolving]
  - Cough [Not Recovered/Not Resolved]
  - Fall [Unknown]
  - Cerebrovascular accident [Recovering/Resolving]

NARRATIVE: CASE EVENT DATE: 201812
